FAERS Safety Report 9944302 (Version 1)
Quarter: 2014Q1

REPORT INFORMATION
  Report Type: Report from Study
  Country: US (occurrence: US)
  Receive Date: 20140303
  Receipt Date: 20140303
  Transmission Date: 20141002
  Serious: No
  Sender: FDA-Public Use
  Company Number: US-ABBVIE-13P-163-1051044-00

PATIENT
  Age: 32 Year
  Sex: Female
  Weight: 59.02 kg

DRUGS (10)
  1. HUMIRA [Suspect]
     Indication: CROHN^S DISEASE
     Dates: start: 201212, end: 201301
  2. HUMIRA [Suspect]
     Dates: start: 201301
  3. AMBIEN [Concomitant]
     Indication: INSOMNIA
  4. LIALDA [Concomitant]
     Indication: CROHN^S DISEASE
  5. MULTIVITAMIN [Concomitant]
     Indication: SUPPLEMENTATION THERAPY
  6. BOSWELLA EXTRACT [Concomitant]
     Indication: SUPPLEMENTATION THERAPY
  7. CURCUMEN [Concomitant]
     Indication: SUPPLEMENTATION THERAPY
  8. VITAMIN D [Concomitant]
     Indication: SUPPLEMENTATION THERAPY
  9. FISH OIL [Concomitant]
     Indication: SUPPLEMENTATION THERAPY
  10. CALCIUM [Concomitant]
     Indication: SUPPLEMENTATION THERAPY

REACTIONS (6)
  - Haematochezia [Recovered/Resolved]
  - Crohn^s disease [Recovering/Resolving]
  - Abdominal pain [Recovered/Resolved]
  - Fatigue [Recovered/Resolved]
  - Pyoderma gangrenosum [Recovering/Resolving]
  - Arthralgia [Recovering/Resolving]
